FAERS Safety Report 9368839 (Version 2)
Quarter: 2013Q3

REPORT INFORMATION
  Report Type: Report from Study
  Country: CA (occurrence: CA)
  Receive Date: 20130626
  Receipt Date: 20130703
  Transmission Date: 20140515
  Serious: Yes (Life-Threatening, Other)
  Sender: FDA-Public Use
  Company Number: CA-ROCHE-1240147

PATIENT
  Sex: Female
  Weight: 90.3 kg

DRUGS (8)
  1. RITUXAN [Suspect]
     Indication: IMMUNE THROMBOCYTOPENIC PURPURA
     Route: 042
     Dates: start: 20130531
  2. RITUXAN [Suspect]
     Indication: OFF LABEL USE
  3. COVERSYL PLUS (CANADA) [Concomitant]
  4. LANTUS [Concomitant]
  5. HUMALOG [Concomitant]
  6. GLYBURIDE [Concomitant]
  7. VITAMIN B3 [Concomitant]
     Route: 065
  8. METFORMIN [Concomitant]
     Indication: DIABETES MELLITUS
     Route: 048
     Dates: start: 2010

REACTIONS (7)
  - Myocardial infarction [Unknown]
  - Drug ineffective [Unknown]
  - Renal disorder [Unknown]
  - Memory impairment [Not Recovered/Not Resolved]
  - Headache [Not Recovered/Not Resolved]
  - Asthenia [Not Recovered/Not Resolved]
  - Platelet count decreased [Unknown]
